FAERS Safety Report 11992282 (Version 2)
Quarter: 2016Q1

REPORT INFORMATION
  Report Type: Spontaneous
  Country: US (occurrence: US)
  Receive Date: 20160203
  Receipt Date: 20160308
  Transmission Date: 20160526
  Serious: No
  Sender: FDA-Public Use
  Company Number: US-JNJFOC-20151223624

PATIENT
  Sex: Male
  Weight: 68.04 kg

DRUGS (19)
  1. BILBERRY [Concomitant]
     Active Substance: BILBERRY
     Indication: NUTRITIONAL SUPPLEMENTATION
     Route: 065
  2. GARLIC. [Concomitant]
     Active Substance: GARLIC
     Indication: NUTRITIONAL SUPPLEMENTATION
     Route: 065
  3. VITAMIN C [Concomitant]
     Active Substance: ASCORBIC ACID
     Indication: NUTRITIONAL SUPPLEMENTATION
     Dosage: SINCE 1995
     Route: 065
  4. LEVOTHYROXINE. [Concomitant]
     Active Substance: LEVOTHYROXINE
     Indication: PRODUCT USED FOR UNKNOWN INDICATION
     Route: 065
  5. BENADRYL [Suspect]
     Active Substance: DIPHENHYDRAMINE HYDROCHLORIDE
     Indication: PREMEDICATION
     Route: 065
  6. B-100 COMPLEX [Concomitant]
     Active Substance: DEXPANTHENOL\NIACINAMIDE\PYRIDOXINE HYDROCHLORIDE\RIBOFLAVIN 5^-PHOSPHATE SODIUM\THIAMINE HYDROCHLORIDE
     Indication: NUTRITIONAL SUPPLEMENTATION
     Route: 065
  7. CORTICOSTEROIDS [Concomitant]
     Active Substance: CORTICOSTEROID NOS
     Indication: PREMEDICATION
     Route: 065
  8. SAW PALMETTO [Concomitant]
     Active Substance: SAW PALMETTO
     Indication: NUTRITIONAL SUPPLEMENTATION
     Route: 065
  9. PANTOPRAZOLE SODIUM. [Concomitant]
     Active Substance: PANTOPRAZOLE SODIUM
     Indication: GASTROOESOPHAGEAL REFLUX DISEASE
     Route: 065
  10. TYLENOL [Suspect]
     Active Substance: ACETAMINOPHEN
     Route: 065
  11. TYLENOL [Suspect]
     Active Substance: ACETAMINOPHEN
     Indication: PREMEDICATION
     Route: 065
  12. SILYMARIN [Concomitant]
     Active Substance: MILK THISTLE
     Indication: NUTRITIONAL SUPPLEMENTATION
     Route: 065
  13. DARZALEX [Concomitant]
     Active Substance: DARATUMUMAB
     Indication: PLASMA CELL MYELOMA
     Dosage: 8 WEEKS THEN EVERY OTHER WEEK
     Route: 065
  14. SELENIUM [Concomitant]
     Active Substance: SELENIUM
     Indication: NUTRITIONAL SUPPLEMENTATION
     Route: 065
  15. HERBAL NOS [Concomitant]
     Active Substance: HERBALS
     Indication: PROPHYLAXIS
     Dosage: SINCE 1995
     Route: 065
  16. IRON COMPLEX [Concomitant]
     Indication: NUTRITIONAL SUPPLEMENTATION
     Route: 065
  17. CRANBERRY. [Concomitant]
     Active Substance: CRANBERRY
     Indication: NUTRITIONAL SUPPLEMENTATION
     Route: 065
  18. POTASSIUM CITRATE. [Concomitant]
     Active Substance: POTASSIUM CITRATE
     Indication: NUTRITIONAL SUPPLEMENTATION
     Route: 065
  19. MULTIVITAMIN [Concomitant]
     Active Substance: VITAMINS
     Indication: NUTRITIONAL SUPPLEMENTATION
     Route: 065

REACTIONS (2)
  - Product use issue [Unknown]
  - Off label use [Unknown]
